FAERS Safety Report 9592834 (Version 1)
Quarter: 2013Q4

REPORT INFORMATION
  Report Type: Report from Study
  Country: BR (occurrence: BR)
  Receive Date: 20131004
  Receipt Date: 20131004
  Transmission Date: 20140711
  Serious: Yes (Death, Other)
  Sender: FDA-Public Use
  Company Number: PHHY2013BR110604

PATIENT
  Sex: Male

DRUGS (1)
  1. FORASEQ [Suspect]
     Indication: LUNG DISORDER
     Dosage: UNK UKN, BID
     Dates: start: 2009

REACTIONS (2)
  - Respiratory failure [Fatal]
  - Dyspnoea [Not Recovered/Not Resolved]
